FAERS Safety Report 10713901 (Version 2)
Quarter: 2015Q1

REPORT INFORMATION
  Report Type: Report from Study
  Country: CO (occurrence: CO)
  Receive Date: 20150115
  Receipt Date: 20150203
  Transmission Date: 20150721
  Serious: Yes (Hospitalization)
  Sender: FDA-Public Use
  Company Number: PHHY2015CO004087

PATIENT
  Sex: Male

DRUGS (2)
  1. OMEPRAZOLE. [Concomitant]
     Active Substance: OMEPRAZOLE
     Indication: GASTRITIS
     Route: 065
  2. TASIGNA [Suspect]
     Active Substance: NILOTINIB
     Indication: MYELOID LEUKAEMIA
     Dosage: 2 DF, Q12H
     Route: 065
     Dates: start: 20150105

REACTIONS (4)
  - Hyperhidrosis [Unknown]
  - Anorectal discomfort [Not Recovered/Not Resolved]
  - Dysuria [Unknown]
  - Pain [Unknown]

NARRATIVE: CASE EVENT DATE: 20150105
